FAERS Safety Report 7746538-0 (Version None)
Quarter: 2011Q3

REPORT INFORMATION
  Report Type: 
  Country: None (occurrence: None)
  Receive Date: 20110908
  Receipt Date: 20110829
  Transmission Date: 20111222
  Serious: Yes (Other)
  Sender: FDA-Public Use
  Company Number: 1033923

PATIENT
  Age: 52 Year
  Sex: Female

DRUGS (3)
  1. LEUCOVORIN CALCIUM [Suspect]
     Indication: GASTRIC CANCER
  2. OXALIPLATIN [Suspect]
     Indication: GASTRIC CANCER
  3. FLUOROURACIL [Suspect]
     Indication: GASTRIC CANCER

REACTIONS (7)
  - POSTERIOR REVERSIBLE ENCEPHALOPATHY SYNDROME [None]
  - RESPIRATORY FAILURE [None]
  - DELIRIUM [None]
  - SUBDURAL HAEMORRHAGE [None]
  - GRAND MAL CONVULSION [None]
  - NEUROTOXICITY [None]
  - BLOOD PRESSURE SYSTOLIC INCREASED [None]
